FAERS Safety Report 9606297 (Version 2)
Quarter: 2013Q4

REPORT INFORMATION
  Report Type: Spontaneous
  Country: US (occurrence: US)
  Receive Date: 20131008
  Receipt Date: 20131008
  Transmission Date: 20140711
  Serious: No
  Sender: FDA-Public Use
  Company Number: US-AMGEN-USASP2013043992

PATIENT
  Age: 84 Year
  Sex: Female
  Weight: 74.38 kg

DRUGS (17)
  1. PROLIA [Suspect]
     Indication: OSTEOPOROSIS POSTMENOPAUSAL
     Dosage: 60 MG, Q6MO
     Route: 030
     Dates: start: 20130505
  2. PROLIA [Suspect]
     Indication: RHEUMATOID ARTHRITIS
  3. LISINOPRIL [Concomitant]
     Dosage: 20 MG, QD
     Route: 048
  4. KLOR CON [Concomitant]
     Dosage: 10 MEQ, QD
     Route: 048
  5. HYDROCHLOROTHIAZID [Concomitant]
     Dosage: 25 MG, QD
     Route: 048
  6. OMEPRAZOLE [Concomitant]
     Dosage: 20 MG, QD
  7. CARVEDILOL [Concomitant]
     Dosage: 3.125 MG, BID
     Route: 048
  8. ALPRAZOLAM [Concomitant]
     Dosage: 1 MG, 1/2 TAB, BID
     Route: 048
  9. CALTRATE VITAMINE D3 [Concomitant]
     Dosage: 1 DF, QD
     Route: 048
  10. VITAMIN D3 [Concomitant]
     Dosage: 5000 UNIT, QD
     Route: 048
  11. CEPHALEXIN                         /00145501/ [Concomitant]
     Dosage: 250 MG, TID
     Route: 048
  12. ASPIRIN [Concomitant]
     Dosage: 81 MG, UNK
     Route: 048
  13. PRAVASTATIN                        /00880402/ [Concomitant]
     Dosage: 40 MG, QHS
     Route: 048
  14. TYLENOL                            /00020001/ [Concomitant]
     Dosage: 325 MG, BID
     Route: 048
  15. MULTIVITAMIN MULTIMINERAL [Concomitant]
     Dosage: 1 UNK, UNK
     Route: 048
  16. NYSTATIN AND TRIAMCINOLONE [Concomitant]
     Dosage: UNK
     Route: 061
  17. FISH OIL [Concomitant]
     Dosage: 1000 MG, UNK
     Route: 048

REACTIONS (8)
  - Back disorder [Unknown]
  - Red blood cell sedimentation rate increased [Unknown]
  - Muscular weakness [Unknown]
  - Cystitis [Unknown]
  - Arthralgia [Unknown]
  - Fatigue [Unknown]
  - Myalgia [Recovering/Resolving]
  - Pain in extremity [Unknown]
